APPROVED DRUG PRODUCT: SIKLOS
Active Ingredient: HYDROXYUREA
Strength: 1GM
Dosage Form/Route: TABLET;ORAL
Application: N208843 | Product #002
Applicant: THERAVIA PHARMA
Approved: Dec 21, 2017 | RLD: Yes | RS: Yes | Type: RX